FAERS Safety Report 19021604 (Version 1)
Quarter: 2021Q1

REPORT INFORMATION
  Report Type: Spontaneous
  Country: US (occurrence: US)
  Receive Date: 20210318
  Receipt Date: 20210318
  Transmission Date: 20210420
  Serious: Yes (Other)
  Sender: FDA-Public Use
  Company Number: US-ASTRAZENECA-2018SF65665

PATIENT
  Sex: Female
  Weight: 81.6 kg

DRUGS (37)
  1. PRILOSEC [Suspect]
     Active Substance: OMEPRAZOLE MAGNESIUM
     Indication: GASTROOESOPHAGEAL REFLUX DISEASE
     Route: 048
     Dates: start: 1991, end: 2020
  2. OMEPRAZOLE OTC [Suspect]
     Active Substance: OMEPRAZOLE
     Indication: GASTROOESOPHAGEAL REFLUX DISEASE
     Dosage: EQUATE OMEPRAZOLE MAGNESIUM 20.6 MG (OTC)
     Route: 048
     Dates: start: 2019
  3. OMEPRAZOLE OTC [Suspect]
     Active Substance: OMEPRAZOLE
     Indication: HIATUS HERNIA
     Dosage: EQUATE OMEPRAZOLE MAGNESIUM 20.6 MG (OTC)
     Route: 048
     Dates: start: 2019
  4. PREVACID [Suspect]
     Active Substance: LANSOPRAZOLE
     Indication: GASTROOESOPHAGEAL REFLUX DISEASE
     Route: 065
     Dates: start: 1995, end: 2019
  5. LISINOPRIL. [Concomitant]
     Active Substance: LISINOPRIL
     Indication: BLOOD PRESSURE ABNORMAL
  6. AMOXICILLIN. [Concomitant]
     Active Substance: AMOXICILLIN
     Indication: INFECTION
     Dates: start: 201501
  7. NAPROXEN. [Concomitant]
     Active Substance: NAPROXEN
     Indication: PAIN
     Dates: start: 201608
  8. FENOFIBRATE. [Concomitant]
     Active Substance: FENOFIBRATE
     Dosage: ONE PER DAY AS NEEDED.
     Dates: start: 1990, end: 2005
  9. ATORVASTATIN [Concomitant]
     Active Substance: ATORVASTATIN
     Dosage: ONE PER DAY AS NEEDED.
     Dates: start: 1990, end: 2005
  10. ATORVASTATIN [Concomitant]
     Active Substance: ATORVASTATIN
     Indication: BLOOD CHOLESTEROL INCREASED
     Dates: start: 201302
  11. AMOXICILLIN. [Concomitant]
     Active Substance: AMOXICILLIN
     Indication: INFECTION
     Dates: start: 201405
  12. SYMBICORT [Concomitant]
     Active Substance: BUDESONIDE\FORMOTEROL FUMARATE DIHYDRATE
     Dosage: ONE PER DAY AS NEEDED.
     Dates: start: 1990, end: 2005
  13. PAXIL [Concomitant]
     Active Substance: PAROXETINE HYDROCHLORIDE
     Dosage: ONE PER DAY AS NEEDED.
     Dates: start: 1990, end: 2005
  14. HYDROCODONE [Concomitant]
     Active Substance: HYDROCODONE
     Indication: PAIN
     Dates: start: 201301, end: 201406
  15. AZITHROMYCIN ANHYDROUS. [Concomitant]
     Active Substance: AZITHROMYCIN ANHYDROUS
     Indication: INFECTION
     Dates: start: 201404
  16. AZITHROMYCIN ANHYDROUS. [Concomitant]
     Active Substance: AZITHROMYCIN ANHYDROUS
     Indication: INFECTION
     Dates: start: 201512
  17. TRAMADOL. [Concomitant]
     Active Substance: TRAMADOL
     Indication: PAIN
     Dates: start: 201406, end: 201506
  18. METFORMIN [Concomitant]
     Active Substance: METFORMIN HYDROCHLORIDE
     Dosage: ONE PER DAY AS NEEDED.
     Dates: start: 1990, end: 2005
  19. PREVACID [Suspect]
     Active Substance: LANSOPRAZOLE
     Indication: HIATUS HERNIA
     Route: 065
     Dates: start: 1995, end: 2019
  20. AZITHROMYCIN ANHYDROUS. [Concomitant]
     Active Substance: AZITHROMYCIN ANHYDROUS
     Indication: INFECTION
     Dates: start: 201501
  21. TUMS [Concomitant]
     Active Substance: CALCIUM CARBONATE
     Dosage: ONE PER DAY AS NEEDED.
     Dates: start: 1990, end: 2005
  22. ASTELIN [Concomitant]
     Active Substance: AZELASTINE HYDROCHLORIDE
     Dosage: ONE PER DAY AS NEEDED.
     Dates: start: 1990, end: 2005
  23. PRILOSEC [Suspect]
     Active Substance: OMEPRAZOLE MAGNESIUM
     Indication: HIATUS HERNIA
     Route: 048
     Dates: start: 1991, end: 2020
  24. AMOXICILLIN. [Concomitant]
     Active Substance: AMOXICILLIN
     Indication: INFECTION
     Dates: start: 201512
  25. TYLENOL [Concomitant]
     Active Substance: ACETAMINOPHEN
     Dosage: ONE PER DAY AS NEEDED.
     Dates: start: 1990, end: 2005
  26. PREVACID 24 HR [Suspect]
     Active Substance: LANSOPRAZOLE
     Indication: HIATUS HERNIA
     Route: 065
     Dates: start: 2011
  27. ZESTRIL [Concomitant]
     Active Substance: LISINOPRIL
     Dosage: ONE PER DAY AS NEEDED.
     Dates: start: 1990, end: 2005
  28. SINGULAIR [Concomitant]
     Active Substance: MONTELUKAST SODIUM
     Dosage: ONE PER DAY AS NEEDED.
     Dates: start: 1990, end: 2005
  29. GABAPENTIN. [Concomitant]
     Active Substance: GABAPENTIN
     Dosage: ONE PER DAY AS NEEDED.
     Dates: start: 1990, end: 2005
  30. PREVACID 24 HR [Suspect]
     Active Substance: LANSOPRAZOLE
     Indication: GASTROOESOPHAGEAL REFLUX DISEASE
     Route: 065
     Dates: start: 2011
  31. VOLTAREN [Concomitant]
     Active Substance: DICLOFENAC SODIUM
     Indication: PAIN
     Dates: start: 201305, end: 201507
  32. FLONASE [Concomitant]
     Active Substance: FLUTICASONE PROPIONATE
     Dosage: ONE PER DAY AS NEEDED.
     Dates: start: 1990, end: 2005
  33. DOXYCYCLINE. [Concomitant]
     Active Substance: DOXYCYCLINE
     Dosage: ONE PER DAY AS NEEDED.
     Dates: start: 1990, end: 2005
  34. BYDUREON [Concomitant]
     Active Substance: EXENATIDE
     Dosage: ONE PER DAY AS NEEDED.
     Dates: start: 1990, end: 2005
  35. TRILIPIX [Concomitant]
     Active Substance: FENOFIBRIC ACID
     Indication: BLOOD PRESSURE ABNORMAL
  36. METFORMIN [Concomitant]
     Active Substance: METFORMIN HYDROCHLORIDE
     Indication: DIABETES MELLITUS
     Dates: start: 201302
  37. PROAIR HFA [Concomitant]
     Active Substance: ALBUTEROL SULFATE
     Dosage: ONE PER DAY AS NEEDED.
     Dates: start: 1990, end: 2005

REACTIONS (2)
  - Chronic kidney disease [Not Recovered/Not Resolved]
  - Renal injury [Unknown]
